FAERS Safety Report 15768049 (Version 1)
Quarter: 2018Q4

REPORT INFORMATION
  Report Type: Spontaneous
  Country: GB (occurrence: GB)
  Receive Date: 20181227
  Receipt Date: 20181227
  Transmission Date: 20190205
  Serious: Yes (Hospitalization)
  Sender: FDA-Public Use
  Company Number: GXKR2007GB07625

PATIENT
  Age: 14 Month
  Sex: Male
  Weight: 12.5 kg

DRUGS (2)
  1. CEFTRIAXONE. [Suspect]
     Active Substance: CEFTRIAXONE
     Indication: SEPSIS
     Dosage: 1 G, UNK
     Route: 042
     Dates: start: 20061226, end: 20061229
  2. SYTRON [Concomitant]
     Indication: PRODUCT USED FOR UNKNOWN INDICATION
     Dosage: 2.5 ML, TID
     Route: 065
     Dates: start: 2007, end: 2007

REACTIONS (1)
  - Pancytopenia [Recovered/Resolved]

NARRATIVE: CASE EVENT DATE: 20061229
